FAERS Safety Report 9146223 (Version 5)
Quarter: 2013Q2

REPORT INFORMATION
  Report Type: Report from Study
  Country: US (occurrence: US)
  Receive Date: 20130307
  Receipt Date: 20130403
  Transmission Date: 20140414
  Serious: Yes (Hospitalization)
  Sender: FDA-Public Use
  Company Number: US-VERTEX PHARMACEUTICALS INC.-2013-003090

PATIENT
  Age: 63 Year
  Sex: Female
  Weight: 68 kg

DRUGS (7)
  1. VX-950 (TELAPREVIR) [Suspect]
     Indication: HEPATITIS C
     Dosage: 750 MG, TID
     Route: 048
     Dates: start: 20130109, end: 20130311
  2. COPEGUS [Suspect]
     Indication: HEPATITIS C
     Dosage: 600 MG, TID
     Route: 048
     Dates: start: 20130109, end: 201303
  3. PEGASYS [Suspect]
     Indication: HEPATITIS C
     Dosage: 180 ?G, QW
     Route: 058
     Dates: start: 20130109, end: 201303
  4. PRILOSEC [Concomitant]
     Indication: GASTROOESOPHAGEAL REFLUX DISEASE
  5. BENTYL [Concomitant]
     Dosage: 10 MG, TID
  6. DOXEPIN [Concomitant]
     Dosage: 50 MG, HS
  7. LYRICA [Concomitant]
     Dosage: 75 MG, QD

REACTIONS (7)
  - Anaemia [Unknown]
  - Haemoptysis [Unknown]
  - Balance disorder [Recovered/Resolved]
  - Epistaxis [Unknown]
  - Fall [Recovered/Resolved]
  - Pain [Recovered/Resolved]
  - Tongue discolouration [Unknown]
